FAERS Safety Report 6381486-2 (Version None)
Quarter: 2009Q3

REPORT INFORMATION
  Report Type: 
  Country: None (occurrence: None)
  Receive Date: 20090924
  Receipt Date: 20090914
  Transmission Date: 20100115
  Serious: Yes (Other)
  Sender: FDA-Public Use
  Company Number: STI-2009-02496

PATIENT
  Age: 34 Year
  Sex: Female
  Weight: 49.8957 kg

DRUGS (3)
  1. 566B SARNA REGULAR LOTION (CAMPHOR + MENTHOL) (CAMPHOR W/MENTHOL) (0.5 [Suspect]
     Indication: PRURITUS
     Dosage: FOUR TIMES, TOPICAL
     Route: 061
     Dates: start: 20090913, end: 20090913
  2. BACTRIM [Suspect]
     Indication: RASH
     Dosage: 1600 MG, 2 IN 1 DAYS, ORAL
     Route: 048
     Dates: start: 20090903
  3. BENADRYL [Suspect]
     Indication: PRURITUS
     Dosage: 2 CAPSULES AT BEDTIME, ORAL
     Route: 048

REACTIONS (6)
  - ANXIETY [None]
  - CONVULSION [None]
  - DIZZINESS POSTURAL [None]
  - FALL [None]
  - HAEMOPTYSIS [None]
  - SWOLLEN TONGUE [None]
